FAERS Safety Report 5758051-0 (Version None)
Quarter: 2008Q2

REPORT INFORMATION
  Report Type: 
  Country: None (occurrence: None)
  Receive Date: 20080602
  Receipt Date: 20080602
  Transmission Date: 20081010
  Serious: No
  Sender: FDA-Public Use
  Company Number: None

PATIENT
  Sex: Male

DRUGS (2)
  1. HALDOL [Suspect]
     Dosage: 5MG QD PO/YEARS
     Route: 048
  2. HALDOL DECANOATE 100MG/ML [Suspect]
     Dosage: 200MG EVERY 4 WEEKS IM/YEARS
     Route: 030

REACTIONS (3)
  - AGGRESSION [None]
  - EXTRAPYRAMIDAL DISORDER [None]
  - TARDIVE DYSKINESIA [None]
